FAERS Safety Report 5422194-1 (Version None)
Quarter: 2007Q3

REPORT INFORMATION
  Report Type: 
  Country: None (occurrence: None)
  Receive Date: 20070821
  Receipt Date: 20070821
  Transmission Date: 20080115
  Serious: Yes (Hospitalization)
  Sender: FDA-Public Use
  Company Number: None

PATIENT
  Age: 26 Year
  Sex: Male
  Weight: 104 kg

DRUGS (2)
  1. TRAMADOL HCL [Suspect]
     Indication: PAIN
     Dosage: 100MG TID PO
     Route: 048
     Dates: start: 20070423, end: 20070608
  2. SERTRALINE [Suspect]
     Indication: DEPRESSION
     Dosage: 100MG AM PO
     Route: 048
     Dates: start: 20070423

REACTIONS (5)
  - GRAND MAL CONVULSION [None]
  - HEAD INJURY [None]
  - JOINT INJURY [None]
  - PAIN [None]
  - UPPER LIMB FRACTURE [None]
